FAERS Safety Report 4877276-X (Version None)
Quarter: 2006Q1

REPORT INFORMATION
  Report Type: 
  Country: None (occurrence: None)
  Receive Date: 20060109
  Receipt Date: 20051222
  Transmission Date: 20060701
  Serious: Yes (Other)
  Sender: FDA-Public Use
  Company Number: 2005BL007479

PATIENT
  Age: 30 Year
  Sex: Female

DRUGS (1)
  1. TROPICAMIDE [Suspect]
     Indication: OPHTHALMOLOGICAL EXAMINATION
     Dates: start: 20050810, end: 20050810

REACTIONS (14)
  - ABNORMAL SENSATION IN EYE [None]
  - DIPLOPIA [None]
  - EYE DISORDER [None]
  - EYE PAIN [None]
  - FEELING ABNORMAL [None]
  - IATROGENIC INJURY [None]
  - OCULAR HYPERAEMIA [None]
  - PHOTOPHOBIA [None]
  - PHOTOPSIA [None]
  - POST PROCEDURAL COMPLICATION [None]
  - THINKING ABNORMAL [None]
  - VISION BLURRED [None]
  - VISUAL DISTURBANCE [None]
  - VITREOUS FLOATERS [None]
